FAERS Safety Report 9003462 (Version 2)
Quarter: 2013Q1

REPORT INFORMATION
  Report Type: Report from Study
  Country: DE (occurrence: DE)
  Receive Date: 20130108
  Receipt Date: 20130123
  Transmission Date: 20140127
  Serious: Yes (Hospitalization, Other)
  Sender: FDA-Public Use
  Company Number: PHHO2012DE013870

PATIENT
  Sex: 0

DRUGS (20)
  1. CERTICAN [Suspect]
     Indication: RENAL TRANSPLANT
     Dosage: 5 MG, BID
     Route: 048
     Dates: start: 20121116
  2. PROGRAF [Suspect]
     Indication: RENAL TRANSPLANT
     Dosage: 5 MG, BID
     Dates: start: 20120906
  3. MYFORTIC [Suspect]
     Indication: RENAL TRANSPLANT
     Dosage: 360 MG, BID
     Dates: start: 20120905, end: 20130101
  4. MYFORTIC [Suspect]
     Dosage: 720 UNK, UNK
     Route: 048
     Dates: start: 20130107
  5. SOLU DECORTIN H [Suspect]
     Indication: RENAL TRANSPLANT
     Dosage: 5 MG, UNK
     Route: 048
     Dates: start: 20120906, end: 20130101
  6. SOLU DECORTIN H [Suspect]
     Dosage: 250 MG, UNK
     Route: 042
     Dates: start: 20130103
  7. SOLU DECORTIN H [Suspect]
     Dosage: 100 MG, UNK
     Route: 042
  8. SOLU DECORTIN H [Suspect]
     Dosage: 80 MG, UNK
     Route: 042
     Dates: start: 20130109
  9. SIMULECT [Concomitant]
     Indication: RENAL TRANSPLANT
     Dosage: 20 MG, QD
     Dates: start: 20120906, end: 20120906
  10. SIMULECT [Concomitant]
     Dosage: 20 MG, QD
     Dates: start: 20120910, end: 20120910
  11. BICANORM [Concomitant]
     Indication: METABOLIC ACIDOSIS
     Dosage: 1 G, TID
     Dates: start: 20120911
  12. ALLOPURINOL [Concomitant]
     Indication: HYPERURICAEMIA
     Dosage: 100 MG, QD
     Dates: start: 20120910
  13. NEBILET [Concomitant]
     Indication: HYPERTENSION
     Dosage: 10 MG, QD
     Dates: start: 20120907
  14. NORVASC [Concomitant]
     Indication: HYPERTENSION
     Dosage: 5 MG, BID
     Dates: start: 20120906
  15. ENALAPRIL [Concomitant]
     Indication: HYPERTENSION
     Dosage: 5 MG, QD
     Dates: start: 20120918
  16. AMLODIPINE [Concomitant]
     Indication: HYPERTENSION
     Dosage: 10 MG, BID
     Route: 048
  17. MOXONIDINE [Concomitant]
     Indication: HYPERTENSION
     Dosage: 0.6 MG, BID
     Route: 048
  18. PANTOPRAZOL [Concomitant]
     Indication: PROPHYLAXIS
     Dosage: 40 MG, UNK
     Route: 048
  19. PRAVASTATIN [Concomitant]
     Indication: HYPERCHOLESTEROLAEMIA
     Dosage: 20 MG, UNK
     Route: 048
  20. TOREM [Concomitant]
     Indication: PROPHYLAXIS
     Dosage: 5 MG, UNK
     Route: 048

REACTIONS (1)
  - Kidney transplant rejection [Recovered/Resolved]
